FAERS Safety Report 7768664-2 (Version None)
Quarter: 2011Q3

REPORT INFORMATION
  Report Type: 
  Country: None (occurrence: None)
  Receive Date: 20110922
  Receipt Date: 20110613
  Transmission Date: 20111222
  Serious: Yes (Other)
  Sender: FDA-Public Use
  Company Number: US-ASTRAZENECA-2009UW11847

PATIENT
  Age: 55 Year
  Sex: Female

DRUGS (7)
  1. SEROQUEL [Suspect]
     Route: 048
     Dates: start: 20040101
  2. WELLBUTRIN SR [Concomitant]
     Dates: start: 20030101
  3. SEROQUEL [Suspect]
     Indication: INSOMNIA
     Route: 048
     Dates: start: 20030101
  4. SEROQUEL [Suspect]
     Indication: PSYCHOTIC DISORDER
     Route: 048
     Dates: start: 20030101
  5. ZOLOFT [Concomitant]
     Dates: start: 20030101
  6. ZYPREXA [Concomitant]
     Dates: end: 20030101
  7. SEROQUEL [Suspect]
     Route: 048
     Dates: start: 20040101

REACTIONS (1)
  - PANCREATITIS [None]
